FAERS Safety Report 7318946-3 (Version None)
Quarter: 2011Q1

REPORT INFORMATION
  Report Type: 
  Country: None (occurrence: None)
  Receive Date: 20110228
  Receipt Date: 20110224
  Transmission Date: 20110831
  Serious: Yes (Death)
  Sender: FDA-Public Use
  Company Number: US-SANOFI-AVENTIS-2011SA011997

PATIENT

DRUGS (1)
  1. RILUTEK [Suspect]
     Route: 048
     Dates: end: 20110201

REACTIONS (1)
  - DEATH [None]
